FAERS Safety Report 10996146 (Version 1)
Quarter: 2015Q2

REPORT INFORMATION
  Report Type: Spontaneous
  Country: GB (occurrence: GB)
  Receive Date: 20150407
  Receipt Date: 20150407
  Transmission Date: 20150821
  Serious: Yes (Death, Hospitalization)
  Sender: FDA-Public Use
  Company Number: PHHY2015GB037959

PATIENT
  Age: 79 Year
  Sex: Female

DRUGS (5)
  1. COTRIMOXAZOLE [Concomitant]
     Active Substance: SULFAMETHOXAZOLE\TRIMETHOPRIM
     Indication: PROPHYLAXIS
     Route: 065
  2. NYSTATIN. [Concomitant]
     Active Substance: NYSTATIN
     Indication: MOUTH ULCERATION
     Route: 065
  3. PREDNISOLONE. [Suspect]
     Active Substance: PREDNISOLONE
     Dosage: 60 MG, UNK
     Route: 048
  4. CYCLOPHOSPHAMIDE. [Suspect]
     Active Substance: CYCLOPHOSPHAMIDE
     Indication: ANTINEUTROPHIL CYTOPLASMIC ANTIBODY POSITIVE
     Dosage: 100 MG, EVENING
     Route: 065
  5. PREDNISOLONE. [Suspect]
     Active Substance: PREDNISOLONE
     Indication: ANTINEUTROPHIL CYTOPLASMIC ANTIBODY POSITIVE
     Dosage: 40 MG, UNK
     Route: 048

REACTIONS (3)
  - Cytomegalovirus infection [Fatal]
  - Herpes simplex [Fatal]
  - Renal failure [Fatal]
